FAERS Safety Report 18954904 (Version 1)
Quarter: 2021Q1

REPORT INFORMATION
  Report Type: Spontaneous
  Country: FR (occurrence: FR)
  Receive Date: 20210301
  Receipt Date: 20210301
  Transmission Date: 20210420
  Serious: Yes (Congenital Anomaly)
  Sender: FDA-Public Use
  Company Number: FR-JNJFOC-20210243187

PATIENT
  Sex: Female
  Weight: 34 kg

DRUGS (5)
  1. KEPPRA [Concomitant]
     Active Substance: LEVETIRACETAM
     Indication: EPILEPSY
     Route: 064
     Dates: start: 20130301, end: 20130522
  2. ACIDE FOLIQUE [Concomitant]
     Active Substance: FOLIC ACID
     Indication: PRODUCT USED FOR UNKNOWN INDICATION
     Route: 064
  3. LAMICTAL [Suspect]
     Active Substance: LAMOTRIGINE
     Indication: EPILEPSY
     Route: 064
     Dates: start: 201208, end: 20130522
  4. EPITOMAX [Suspect]
     Active Substance: TOPIRAMATE
     Indication: EPILEPSY
     Route: 064
     Dates: start: 201208, end: 20130522
  5. URBANYL 5 MG, GELULE [Concomitant]
     Active Substance: CLOBAZAM
     Indication: EPILEPSY
     Route: 064
     Dates: start: 20130301, end: 20130522

REACTIONS (3)
  - Otitis media [Recovered/Resolved]
  - Foetal exposure during pregnancy [Recovered/Resolved]
  - Cleft lip and palate [Recovered/Resolved with Sequelae]

NARRATIVE: CASE EVENT DATE: 20121101
